FAERS Safety Report 4291889-8 (Version None)
Quarter: 2004Q1

REPORT INFORMATION
  Report Type: 
  Country: None (occurrence: None)
  Receive Date: 20040211
  Receipt Date: 20030903
  Transmission Date: 20041129
  Serious: No
  Sender: FDA-Public Use
  Company Number: US-GLAXOSMITHKLINE-A0424557A

PATIENT
  Age: 48 Year
  Sex: Female

DRUGS (4)
  1. IMITREX [Suspect]
     Indication: MIGRAINE
     Dosage: 6MG AS REQUIRED
     Route: 058
     Dates: start: 19930101
  2. ESTRATEST [Concomitant]
     Route: 065
  3. TESTOSTERONE [Concomitant]
     Route: 061
  4. THYROXINE [Concomitant]
     Route: 065

REACTIONS (1)
  - CONTUSION [None]
